FAERS Safety Report 6168256-5 (Version None)
Quarter: 2009Q2

REPORT INFORMATION
  Report Type: 
  Country: None (occurrence: None)
  Receive Date: 20090423
  Receipt Date: 20090423
  Transmission Date: 20091009
  Serious: Yes (Life-Threatening, Other)
  Sender: FDA-Public Use
  Company Number: None

PATIENT
  Age: 74 Year
  Sex: Male
  Weight: 72.1219 kg

DRUGS (10)
  1. NIASPAN [Suspect]
     Indication: HIGH DENSITY LIPOPROTEIN DECREASED
     Dosage: 500 MG DAY PO
     Route: 048
     Dates: start: 20090411, end: 20090420
  2. OMEPRAZOLE [Concomitant]
  3. RENAL CAP [Concomitant]
  4. DIOVAN [Concomitant]
  5. QUINAPRIL [Concomitant]
  6. CRESTOR [Concomitant]
  7. FOLIC ACID [Concomitant]
  8. PLAVIX [Concomitant]
  9. ASPIRIN [Concomitant]
  10. CATAPRES  -CLONIDINE TRANSDERMAL PATCH- [Concomitant]

REACTIONS (10)
  - ARTHRALGIA [None]
  - BLOOD PRESSURE INCREASED [None]
  - CHILLS [None]
  - FLATULENCE [None]
  - FLUID RETENTION [None]
  - FURUNCLE [None]
  - MYALGIA [None]
  - OEDEMA PERIPHERAL [None]
  - RASH PRURITIC [None]
  - WEIGHT INCREASED [None]
